FAERS Safety Report 5795423-2 (Version None)
Quarter: 2008Q2

REPORT INFORMATION
  Report Type: 
  Country: None (occurrence: None)
  Receive Date: 20080601
  Receipt Date: 20080131
  Transmission Date: 20081010
  Serious: No
  Sender: FDA-Public Use
  Company Number: US200802000469

PATIENT
  Age: 54 Year
  Sex: Female

DRUGS (3)
  1. BYETTA [Suspect]
     Indication: TYPE 2 DIABETES MELLITUS
     Dosage: 5 UG, 2/D, SUBCUTANEOUS ; 10 UG, 2/D, SUBCUTANEOUS
     Route: 058
     Dates: start: 20070101
  2. GLUCOVANCE [Concomitant]
  3. LEVEMIR              (INSULIN DETEMIR) [Concomitant]

REACTIONS (6)
  - BLOOD GLUCOSE INCREASED [None]
  - EAR INFECTION [None]
  - HEADACHE [None]
  - INFLUENZA [None]
  - NAUSEA [None]
  - VOMITING [None]
